FAERS Safety Report 10195590 (Version 1)
Quarter: 2014Q2

REPORT INFORMATION
  Report Type: Spontaneous
  Country: US (occurrence: US)
  Receive Date: 20140527
  Receipt Date: 20140527
  Transmission Date: 20141212
  Serious: No
  Sender: FDA-Public Use
  Company Number: US-009507513-1405USA010179

PATIENT
  Sex: Male

DRUGS (1)
  1. COPPERTONE OIL FREE SPF 15 [Suspect]
     Indication: PRODUCT USED FOR UNKNOWN INDICATION
     Dosage: UNK, UNKNOWN

REACTIONS (3)
  - Pruritus [Unknown]
  - Erythema [Unknown]
  - Expired product administered [Unknown]
